FAERS Safety Report 8380878-X (Version None)
Quarter: 2012Q2

REPORT INFORMATION
  Report Type: 
  Country: None (occurrence: None)
  Receive Date: 20120523
  Receipt Date: 20120514
  Transmission Date: 20120825
  Serious: Yes (Hospitalization, Other)
  Sender: FDA-Public Use
  Company Number: US-MERCK-1203USA02452

PATIENT
  Age: 58 Year
  Sex: Female
  Weight: 62 kg

DRUGS (6)
  1. FOSAMAX [Suspect]
     Route: 048
     Dates: start: 20030101
  2. FOSAMAX [Suspect]
     Route: 048
     Dates: start: 20080101
  3. FOSAMAX PLUS D [Suspect]
     Route: 048
  4. FOSAMAX [Suspect]
     Indication: OSTEOPOROSIS
     Route: 048
     Dates: start: 20100101
  5. FOSAMAX [Suspect]
     Route: 048
     Dates: start: 20081001
  6. CORTICOSTEROIDS (UNSPECIFIED) [Suspect]
     Route: 065

REACTIONS (35)
  - FEMUR FRACTURE [None]
  - ARTHROPOD STING [None]
  - HYPERLIPIDAEMIA [None]
  - PARATHYROID DISORDER [None]
  - DIABETES MELLITUS [None]
  - HEADACHE [None]
  - LIVER FUNCTION TEST ABNORMAL [None]
  - JOINT INJURY [None]
  - CARPAL TUNNEL DECOMPRESSION [None]
  - CYST [None]
  - FIBROMYALGIA [None]
  - TENOSYNOVITIS [None]
  - RHEUMATOID ARTHRITIS [None]
  - OSTEOPOROSIS [None]
  - LOW TURNOVER OSTEOPATHY [None]
  - CONSTIPATION [None]
  - CELLULITIS [None]
  - FALL [None]
  - FOOT FRACTURE [None]
  - VITAMIN D DEFICIENCY [None]
  - SJOGREN'S SYNDROME [None]
  - KYPHOSIS [None]
  - INTERVERTEBRAL DISC DEGENERATION [None]
  - OSTEOARTHRITIS [None]
  - MYALGIA [None]
  - BARTHOLIN'S CYST [None]
  - APPENDIX DISORDER [None]
  - NEPHROLITHIASIS [None]
  - HYPERTENSION [None]
  - JOINT EFFUSION [None]
  - INCREASED TENDENCY TO BRUISE [None]
  - ANXIETY [None]
  - ANAEMIA [None]
  - HIP FRACTURE [None]
  - ADVERSE DRUG REACTION [None]
